FAERS Safety Report 5937914-7 (Version None)
Quarter: 2008Q4

REPORT INFORMATION
  Report Type: 
  Country: None (occurrence: None)
  Receive Date: 20081031
  Receipt Date: 20081027
  Transmission Date: 20090506
  Serious: Yes (Hospitalization)
  Sender: FDA-Public Use
  Company Number: US-ASTRAZENECA-2008UW18424

PATIENT
  Age: 66 Year
  Sex: Female
  Weight: 154.2 kg

DRUGS (9)
  1. ARIMIDEX [Suspect]
     Indication: BREAST CANCER
     Route: 048
     Dates: start: 20050106
  2. LISINOPRIL [Concomitant]
  3. LOVASTATIN [Concomitant]
  4. LEVOTHYROXINE SODIUM [Concomitant]
  5. SIMVASTATIN [Concomitant]
  6. PEPCID [Concomitant]
  7. METOPROLOL TARTRATE [Concomitant]
  8. METFORMIN HCL [Concomitant]
  9. HYDROCODONE BITARTRATE [Concomitant]

REACTIONS (9)
  - AMNESIA [None]
  - ARTHRITIS [None]
  - CELLULITIS [None]
  - HOT FLUSH [None]
  - MYALGIA [None]
  - OEDEMA PERIPHERAL [None]
  - OSTEOARTHRITIS [None]
  - TYPE 2 DIABETES MELLITUS [None]
  - WEIGHT INCREASED [None]
